FAERS Safety Report 22957455 (Version 2)
Quarter: 2023Q4

REPORT INFORMATION
  Report Type: Spontaneous
  Country: CA (occurrence: CA)
  Receive Date: 20230919
  Receipt Date: 20231220
  Transmission Date: 20240109
  Serious: Yes (Other)
  Sender: FDA-Public Use
  Company Number: CA-HIKMA PHARMACEUTICALS USA INC.-CA-H14001-23-65097

PATIENT

DRUGS (19)
  1. AZATHIOPRINE [Suspect]
     Active Substance: AZATHIOPRINE
     Indication: New onset refractory status epilepticus
     Dosage: UNKNOWN
     Route: 065
  2. BRIVARACETAM [Suspect]
     Active Substance: BRIVARACETAM
     Indication: New onset refractory status epilepticus
     Dosage: UNKNOWN
     Route: 065
  3. ESLICARBAZEPINE ACETATE [Suspect]
     Active Substance: ESLICARBAZEPINE ACETATE
     Indication: Product used for unknown indication
     Dosage: UNKNOWN
     Route: 048
  4. FENTANYL [Suspect]
     Active Substance: FENTANYL\FENTANYL CITRATE
     Indication: New onset refractory status epilepticus
     Dosage: UNKNOWN
     Route: 065
  5. KETAMINE [Suspect]
     Active Substance: KETAMINE
     Indication: New onset refractory status epilepticus
     Dosage: UNKNOWN
     Route: 065
  6. LACOSAMIDE [Suspect]
     Active Substance: LACOSAMIDE
     Indication: New onset refractory status epilepticus
     Dosage: UNKNOWN
     Route: 065
  7. LAMOTRIGINE [Suspect]
     Active Substance: LAMOTRIGINE
     Indication: New onset refractory status epilepticus
     Dosage: UNKNOWN
     Route: 065
  8. LEVETIRACETAM [Suspect]
     Active Substance: LEVETIRACETAM
     Indication: New onset refractory status epilepticus
     Dosage: UNKNOWN
     Route: 065
  9. METHYLPREDNISOLONE [Suspect]
     Active Substance: METHYLPREDNISOLONE
     Indication: New onset refractory status epilepticus
     Dosage: UNKNOWN
     Route: 065
  10. MIDAZOLAM [Suspect]
     Active Substance: MIDAZOLAM
     Indication: New onset refractory status epilepticus
     Dosage: UNKNOWN
     Route: 065
  11. PHENOBARBITAL [Suspect]
     Active Substance: PHENOBARBITAL
     Indication: New onset refractory status epilepticus
     Dosage: UNKNOWN
     Route: 065
  12. PHENYTOIN [Suspect]
     Active Substance: PHENYTOIN
     Indication: New onset refractory status epilepticus
     Dosage: UNKNOWN
     Route: 065
  13. PREDNISONE [Suspect]
     Active Substance: PREDNISONE
     Indication: New onset refractory status epilepticus
     Dosage: UNKNOWN
     Route: 065
  14. PROPOFOL [Suspect]
     Active Substance: PROPOFOL
     Indication: New onset refractory status epilepticus
     Dosage: UNKNOWN
     Route: 065
  15. TOPIRAMATE [Suspect]
     Active Substance: TOPIRAMATE
     Indication: New onset refractory status epilepticus
     Dosage: UNKNOWN
     Route: 065
  16. VALPROIC ACID [Suspect]
     Active Substance: VALPROIC ACID
     Indication: New onset refractory status epilepticus
     Dosage: UNKNOWN
     Route: 065
  17. ACYCLOVIR [Concomitant]
     Active Substance: ACYCLOVIR
     Indication: Product used for unknown indication
     Dosage: UNKNOWN
     Route: 065
  18. PIPERACILLIN AND TAZOBACTAM [Concomitant]
     Active Substance: PIPERACILLIN SODIUM\TAZOBACTAM SODIUM
     Indication: New onset refractory status epilepticus
     Dosage: UNKNOWN
     Route: 065
  19. VANCOMYCIN [Concomitant]
     Active Substance: VANCOMYCIN
     Indication: Product used for unknown indication
     Dosage: UNKNOWN
     Route: 065

REACTIONS (4)
  - New onset refractory status epilepticus [Unknown]
  - Condition aggravated [Unknown]
  - Drug ineffective [Unknown]
  - Product use in unapproved indication [Unknown]
